FAERS Safety Report 21436541 (Version 10)
Quarter: 2025Q3

REPORT INFORMATION
  Report Type: Report from Study
  Country: JP (occurrence: JP)
  Receive Date: 20221010
  Receipt Date: 20250803
  Transmission Date: 20251021
  Serious: Yes (Death, Life-Threatening, Hospitalization, Other)
  Sender: ALEXION PHARMACEUTICALS
  Company Number: 2022A341144

PATIENT
  Age: 91 Year
  Sex: Male
  Weight: 48 kg

DRUGS (37)
  1. ANDEXANET ALFA [Suspect]
     Active Substance: ANDEXANET ALFA
     Indication: Traumatic subarachnoid haemorrhage
  2. EDOXABAN TOSYLATE [Suspect]
     Active Substance: EDOXABAN TOSYLATE
     Dosage: 30 MILLIGRAM, QD
     Dates: start: 20220622, end: 20220630
  3. EDOXABAN TOSYLATE [Suspect]
     Active Substance: EDOXABAN TOSYLATE
  4. JANUVIA [Concomitant]
     Active Substance: SITAGLIPTIN PHOSPHATE
     Indication: Diabetes mellitus
  5. JANUVIA [Concomitant]
     Active Substance: SITAGLIPTIN PHOSPHATE
  6. AMBROXOL HYDROCHLORIDE [Concomitant]
     Active Substance: AMBROXOL HYDROCHLORIDE
     Route: 065
  7. AMBROXOL HYDROCHLORIDE [Concomitant]
     Active Substance: AMBROXOL HYDROCHLORIDE
     Route: 065
  8. AMLODIPINE [Concomitant]
     Active Substance: AMLODIPINE BESYLATE
     Indication: Hypertension
  9. AMLODIPINE [Concomitant]
     Active Substance: AMLODIPINE BESYLATE
  10. GLIMEPIRIDE [Concomitant]
     Active Substance: GLIMEPIRIDE
     Indication: Diabetes mellitus
  11. GLIMEPIRIDE [Concomitant]
     Active Substance: GLIMEPIRIDE
  12. BISOPROLOL FUMARATE [Concomitant]
     Active Substance: BISOPROLOL FUMARATE
     Indication: Cardiac failure
     Dates: start: 20220527
  13. BISOPROLOL FUMARATE [Concomitant]
     Active Substance: BISOPROLOL FUMARATE
     Indication: Atrial fibrillation
  14. BISOPROLOL FUMARATE [Concomitant]
     Active Substance: BISOPROLOL FUMARATE
     Indication: Atrial fibrillation
  15. VONOPRAZAN FUMARATE [Concomitant]
     Active Substance: VONOPRAZAN FUMARATE
     Indication: Prophylaxis
  16. VONOPRAZAN FUMARATE [Concomitant]
     Active Substance: VONOPRAZAN FUMARATE
  17. MIYA-BM [Concomitant]
     Active Substance: CLOSTRIDIUM BUTYRICUM SPORES STRAIN M-55
     Indication: Diarrhoea
  18. TRAMADOL [Concomitant]
     Active Substance: TRAMADOL
  19. TRAMADOL [Concomitant]
     Active Substance: TRAMADOL
  20. TRAMADOL [Concomitant]
     Active Substance: TRAMADOL
  21. MINOCYCLINE HYDROCHLORIDE [Concomitant]
     Active Substance: MINOCYCLINE HYDROCHLORIDE
     Route: 065
  22. MINOCYCLINE HYDROCHLORIDE [Concomitant]
     Active Substance: MINOCYCLINE HYDROCHLORIDE
     Route: 065
  23. MINOCYCLINE HYDROCHLORIDE [Concomitant]
     Active Substance: MINOCYCLINE HYDROCHLORIDE
     Route: 065
  24. MAGNESIUM OXIDE [Concomitant]
     Active Substance: MAGNESIUM OXIDE
     Indication: Constipation
  25. MAGNESIUM OXIDE [Concomitant]
     Active Substance: MAGNESIUM OXIDE
  26. MAGNESIUM OXIDE [Concomitant]
     Active Substance: MAGNESIUM OXIDE
  27. XARELTO [Concomitant]
     Active Substance: RIVAROXABAN
     Indication: Ischaemic stroke
     Route: 065
  28. XARELTO [Concomitant]
     Active Substance: RIVAROXABAN
     Indication: Cerebrovascular accident prophylaxis
     Route: 065
  29. XARELTO [Concomitant]
     Active Substance: RIVAROXABAN
     Route: 065
  30. VEKLURY [Concomitant]
     Active Substance: REMDESIVIR
     Indication: COVID-19
     Route: 065
  31. VEKLURY [Concomitant]
     Active Substance: REMDESIVIR
     Indication: Infection
     Route: 065
  32. METGLUCO [Concomitant]
     Active Substance: METFORMIN HYDROCHLORIDE
     Indication: Diabetes mellitus
  33. METGLUCO [Concomitant]
     Active Substance: METFORMIN HYDROCHLORIDE
  34. METGLUCO [Concomitant]
     Active Substance: METFORMIN HYDROCHLORIDE
  35. LEVETIRACETAM [Concomitant]
     Active Substance: LEVETIRACETAM
     Indication: Seizure
     Route: 065
     Dates: start: 20220524
  36. CEFTRIAXONE SODIUM [Concomitant]
     Active Substance: CEFTRIAXONE SODIUM
     Indication: Pneumonia
     Route: 065
     Dates: start: 20220524
  37. APIXABAN [Concomitant]
     Active Substance: APIXABAN

REACTIONS (8)
  - Necrosis of artery [Fatal]
  - Peripheral arterial occlusive disease [Fatal]
  - Systemic inflammatory response syndrome [Fatal]
  - Seizure [Recovered/Resolved with Sequelae]
  - Pneumonia [Fatal]
  - Diarrhoea [Recovering/Resolving]
  - Fibrin D dimer increased [Recovering/Resolving]
  - Haematochezia [Recovering/Resolving]

NARRATIVE: CASE EVENT DATE: 20220523
